FAERS Safety Report 24570831 (Version 1)
Quarter: 2024Q4

REPORT INFORMATION
  Report Type: Report from Study
  Country: MX (occurrence: MX)
  Receive Date: 20241101
  Receipt Date: 20241101
  Transmission Date: 20250114
  Serious: Yes (Hospitalization, Other)
  Sender: ABBVIE
  Company Number: MX-ABBVIE-5984220

PATIENT
  Age: 67 Year
  Sex: Female
  Weight: 50 kg

DRUGS (1)
  1. VENCLEXTA [Suspect]
     Active Substance: VENETOCLAX
     Indication: Chronic lymphocytic leukaemia
     Dosage: 2 TABLETS?FORM STRENGTH: 100MG
     Route: 048
     Dates: start: 20240814

REACTIONS (10)
  - Lymphadenopathy [Not Recovered/Not Resolved]
  - Hospitalisation [Unknown]
  - Diarrhoea [Unknown]
  - Speech disorder [Not Recovered/Not Resolved]
  - Decreased appetite [Unknown]
  - Weight decreased [Not Recovered/Not Resolved]
  - Food intolerance [Unknown]
  - Asthenia [Unknown]
  - Anaemia [Unknown]
  - Unevaluable event [Unknown]

NARRATIVE: CASE EVENT DATE: 20240101
